FAERS Safety Report 19754979 (Version 2)
Quarter: 2021Q4

REPORT INFORMATION
  Report Type: Spontaneous
  Country: US (occurrence: US)
  Receive Date: 20210827
  Receipt Date: 20211115
  Transmission Date: 20220303
  Serious: No
  Sender: FDA-Public Use
  Company Number: US-ORGANON-O2108USA001391

PATIENT
  Sex: Male

DRUGS (3)
  1. PREGNYL [Suspect]
     Active Substance: CHORIOGONADOTROPIN ALFA
     Indication: Infertility
     Dosage: 10,000 USP UNITS
     Route: 058
  2. WATER [Suspect]
     Active Substance: WATER
     Dosage: UNK
     Route: 058
  3. VITAMINS NOS [Concomitant]
     Active Substance: VITAMINS
     Dosage: UNK

REACTIONS (5)
  - Hyperhidrosis [Not Recovered/Not Resolved]
  - Insomnia [Not Recovered/Not Resolved]
  - Somnolence [Not Recovered/Not Resolved]
  - Product packaging quantity issue [Unknown]
  - Poor quality product administered [Unknown]
